FAERS Safety Report 4311165-4 (Version None)
Quarter: 2004Q1

REPORT INFORMATION
  Report Type: 
  Country: None (occurrence: None)
  Receive Date: 20040302
  Receipt Date: 20040218
  Transmission Date: 20041129
  Serious: Yes (Death, Life-Threatening, Other)
  Sender: FDA-Public Use
  Company Number: 2004010122

PATIENT
  Age: 89 Year
  Sex: Male

DRUGS (5)
  1. DIFLUCAN [Suspect]
     Indication: SYSTEMIC CANDIDA
     Dosage: 200 MG  INTRAVENOUS
     Route: 042
     Dates: start: 20031221, end: 20040113
  2. GALENIC/PANIPENEM/BETAMIPRON/ (BETAMIPRON PANIPENEM) [Suspect]
     Indication: PNEUMONIA
     Dosage: 1 GRAM INTRAVENOUS
     Route: 042
     Dates: start: 20031215, end: 20031223
  3. ARBEKACIN (ARBEKACIN) [Suspect]
     Indication: PNEUMONIA STAPHYLOCOCCAL
     Dosage: 200 MG INTRAVENOUS
     Route: 042
     Dates: start: 20031223, end: 20040107
  4. VANCOMYCIN [Concomitant]
  5. NICARDIPINE HCL [Concomitant]

REACTIONS (8)
  - ALANINE AMINOTRANSFERASE INCREASED [None]
  - ASPARTATE AMINOTRANSFERASE INCREASED [None]
  - BLOOD BILIRUBIN INCREASED [None]
  - BLOOD LACTATE DEHYDROGENASE INCREASED [None]
  - GAMMA-GLUTAMYLTRANSFERASE INCREASED [None]
  - JAUNDICE [None]
  - PNEUMONIA STAPHYLOCOCCAL [None]
  - SENILE DEMENTIA [None]
